FAERS Safety Report 14003059 (Version 1)
Quarter: 2017Q3

REPORT INFORMATION
  Report Type: Spontaneous
  Country: FR (occurrence: FR)
  Receive Date: 20170922
  Receipt Date: 20170922
  Transmission Date: 20171128
  Serious: Yes (Other)
  Sender: FDA-Public Use
  Company Number: FR-MERCK KGAA-2027436

PATIENT
  Age: 22 Year
  Sex: Female

DRUGS (2)
  1. NOVOTHYROX [Suspect]
     Active Substance: LEVOTHYROXINE SODIUM
  2. NOVOTHYROX [Suspect]
     Active Substance: LEVOTHYROXINE SODIUM
     Indication: HYPOTHYROIDISM

REACTIONS (8)
  - Palpitations [Unknown]
  - Wrong technique in product usage process [Unknown]
  - Suicidal ideation [Unknown]
  - Cardiac discomfort [Unknown]
  - Swelling face [Unknown]
  - Skin disorder [Unknown]
  - Insomnia [Unknown]
  - Drug intolerance [Unknown]
